FAERS Safety Report 9518343 (Version 1)
Quarter: 2013Q1

REPORT INFORMATION
  Report Type: Spontaneous
  Country: US (occurrence: None)
  Receive Date: 20130305
  Receipt Date: 20130305
  Transmission Date: 20140127
  Serious: Yes (Hospitalization)
  Sender: FDA-Public Use
  Company Number: 163-21880-12010673

PATIENT
  Age: 78 Year
  Sex: Female
  Weight: 63.5 kg

DRUGS (22)
  1. REVLIMID [Suspect]
     Indication: PLASMA CELL MYELOMA
     Dosage: 10 MG, 1 IN 1 D, PO
     Route: 048
     Dates: start: 201009
  2. DECADRON (DEXAMETHASONE) (4 MILLIGRAM, TABLETS) [Concomitant]
  3. TRAMADOL (TRAMADOL) (TABLETS) [Concomitant]
  4. LEVAQUIN (LEVOFLOXACIN) (TABLETS) [Concomitant]
  5. LASIX (FUROSEMIDE) (TABLETS) [Concomitant]
  6. ALAVERT (LORATADINE) (UNKNOWN) [Concomitant]
  7. CLONIDINE HYDROCHLORIDE (CLONIDINE HYDROCHLORIDE) (UNKNOWN)? [Concomitant]
  8. COSOPT (COSOPT) (SOLUTION) [Concomitant]
  9. COZAR (LOSARTAN POTASSIUM) (TABLETS) [Concomitant]
  10. FOLIC ACID (FOLIC ACID) (UNKNOWN) [Concomitant]
  11. OMEGA 3 (FISH OIL) (CAPSULES) [Concomitant]
  12. OMEPRAZOLE (OMEPRAZOLE) (UNKNOWN) [Concomitant]
  13. PERCOCET (OXYCOCET) (TABLETS) [Concomitant]
  14. PROCHLORPERAZINE MALEATE (PROCHLORPERAZINE MALEATE) (TABLETS) [Concomitant]
  15. SENNA S (COLOXYL WITH SENNA) (TABLETS) [Concomitant]
  16. TRAVATAN (TRAVOPROST) (0.004 PERCENT, SOLUTION) [Concomitant]
  17. TYLENOL (PARACETAMOL) (UNKNOWN) [Concomitant]
  18. VERAMYST (FLUTICASONE FUROATE) (NASAL DROPS (INCLUDING NASAL SPRAY) [Concomitant]
  19. VITAMIN D (ERGOCALCIFEROL) (CAPSULES) [Concomitant]
  20. MEDROL DOSEPAK (METHYLPREDNISOLONE SODIUM SUCCINATE) (TABLETS) [Concomitant]
  21. VICODIN (VICODIN) (TABLETS) [Concomitant]
  22. ZITHROMAX Z-PAK (AZITHROMYCIN) (UNKNOWN) [Concomitant]

REACTIONS (4)
  - Malaise [None]
  - Gait disturbance [None]
  - Asthenia [None]
  - Swelling [None]
